FAERS Safety Report 16724593 (Version 1)
Quarter: 2019Q3

REPORT INFORMATION
  Report Type: Spontaneous
  Country: US (occurrence: US)
  Receive Date: 20190821
  Receipt Date: 20190821
  Transmission Date: 20191005
  Serious: No
  Sender: FDA-Public Use
  Company Number: US-PFIZER INC-2019146770

PATIENT
  Age: 51 Year
  Sex: Male
  Weight: 82 kg

DRUGS (6)
  1. LYRICA [Suspect]
     Active Substance: PREGABALIN
     Indication: EPILEPSY
  2. LYRICA [Suspect]
     Active Substance: PREGABALIN
     Indication: SEIZURE
     Dosage: 300 MG, 2X/DAY (150 MG CAPSULE 2 CAPSULES TWO TIMES DAILY)
     Route: 048
     Dates: start: 20190715, end: 2019
  3. LYRICA [Suspect]
     Active Substance: PREGABALIN
     Indication: PARTIAL SEIZURES
     Dosage: 150 MG, 2X/DAY (TWO 75 MILLIGRAM CAPSULE TWICE PER DAY)
     Route: 048
     Dates: start: 20190312, end: 2019
  4. LYRICA [Suspect]
     Active Substance: PREGABALIN
     Indication: TRIGEMINAL NEURALGIA
     Dosage: 450 MG, 2X/DAY (150 MG, THREE TABLETS TWICE A DAY)
     Route: 048
     Dates: start: 2018
  5. LYRICA [Suspect]
     Active Substance: PREGABALIN
     Indication: FACIAL PAIN
  6. VENLAFAXINE [Concomitant]
     Active Substance: VENLAFAXINE HYDROCHLORIDE
     Dosage: 37.5 MG, 2X/DAY
     Route: 048

REACTIONS (2)
  - Feeling abnormal [Unknown]
  - Intentional product use issue [Unknown]

NARRATIVE: CASE EVENT DATE: 20190715
